FAERS Safety Report 10182011 (Version 1)
Quarter: 2014Q2

REPORT INFORMATION
  Report Type: Spontaneous
  Country: GB (occurrence: GB)
  Receive Date: 20140519
  Receipt Date: 20140519
  Transmission Date: 20141212
  Serious: Yes (Disabling)
  Sender: FDA-Public Use
  Company Number: GB-TEVA-480058ISR

PATIENT
  Age: 47 Year
  Sex: Male
  Weight: 76.6 kg

DRUGS (6)
  1. BACLOFEN [Suspect]
     Dates: start: 20140414
  2. DIAZEPAM [Concomitant]
     Dates: start: 20140422
  3. GABAPENTIN [Concomitant]
     Dates: start: 20140320
  4. PARACETAMOL [Concomitant]
     Dates: start: 20140123
  5. PROPRANOLOL [Concomitant]
     Dates: start: 20140422
  6. ZOMORPH [Concomitant]
     Dates: start: 20140123

REACTIONS (6)
  - Dyspnoea [Unknown]
  - Sinus tachycardia [Unknown]
  - Sleep disorder [Unknown]
  - Claustrophobia [Unknown]
  - Heart rate increased [Unknown]
  - Tremor [Unknown]
